FAERS Safety Report 18565308 (Version 1)
Quarter: 2020Q4

REPORT INFORMATION
  Report Type: Spontaneous
  Country: US (occurrence: US)
  Receive Date: 20201201
  Receipt Date: 20201201
  Transmission Date: 20210114
  Serious: Yes (Other)
  Sender: FDA-Public Use
  Company Number: US-SA-2020SA330803

PATIENT

DRUGS (1)
  1. TUBERSOL [Suspect]
     Active Substance: TUBERCULIN PURIFIED PROTEIN DERIVATIVE
     Indication: TUBERCULIN TEST
     Dosage: 0.1 ML, QD
     Route: 023
     Dates: start: 20201117, end: 20201117

REACTIONS (5)
  - Blood pressure decreased [Recovered/Resolved]
  - Lethargy [Unknown]
  - Seizure [Unknown]
  - Anxiety [Unknown]
  - Product administration error [Unknown]

NARRATIVE: CASE EVENT DATE: 20201117
